FAERS Safety Report 11926471 (Version 2)
Quarter: 2016Q1

REPORT INFORMATION
  Report Type: Spontaneous
  Country: IT (occurrence: IT)
  Receive Date: 20160119
  Receipt Date: 20160128
  Transmission Date: 20160526
  Serious: Yes (Hospitalization, Other)
  Sender: FDA-Public Use
  Company Number: PHHY2016IT004756

PATIENT
  Age: 83 Year
  Sex: Female

DRUGS (4)
  1. LUVION//POTASSIUM CANRENOATE [Concomitant]
     Indication: PRODUCT USED FOR UNKNOWN INDICATION
     Route: 065
  2. TEGRETOL [Suspect]
     Active Substance: CARBAMAZEPINE
     Indication: EPILEPSY
     Dosage: 400 MG, QD
     Route: 048
     Dates: start: 20151001
  3. DELTACORTENE [Concomitant]
     Active Substance: PREDNISONE
     Indication: PRODUCT USED FOR UNKNOWN INDICATION
     Route: 065
  4. LANSOX [Concomitant]
     Active Substance: LANSOPRAZOLE
     Indication: PRODUCT USED FOR UNKNOWN INDICATION
     Dosage: 1 DF, UNK
     Route: 048

REACTIONS (8)
  - Malaise [Unknown]
  - Vomiting [Unknown]
  - Presyncope [Unknown]
  - Thrombocytopenia [Unknown]
  - Face oedema [Unknown]
  - Erythema [Unknown]
  - Swelling face [Unknown]
  - Pneumonia [Unknown]

NARRATIVE: CASE EVENT DATE: 20151230
